FAERS Safety Report 14127640 (Version 2)
Quarter: 2018Q1

REPORT INFORMATION
  Report Type: Spontaneous
  Country: FR (occurrence: FR)
  Receive Date: 20171026
  Receipt Date: 20180205
  Transmission Date: 20180508
  Serious: Yes (Other)
  Sender: FDA-Public Use
  Company Number: FR-MERCK KGAA-2031503

PATIENT
  Age: 38 Year
  Sex: Female
  Weight: 84 kg

DRUGS (2)
  1. SOLU-MEDROL [Suspect]
     Active Substance: METHYLPREDNISOLONE SODIUM SUCCINATE
     Route: 030
     Dates: start: 20170515
  2. NOVOTHYROX [Suspect]
     Active Substance: LEVOTHYROXINE SODIUM
     Indication: HYPOTHYROIDISM
     Route: 048
     Dates: start: 201703

REACTIONS (7)
  - Blood thyroid stimulating hormone abnormal [Not Recovered/Not Resolved]
  - Migraine [Not Recovered/Not Resolved]
  - Blood thyroid stimulating hormone [Not Recovered/Not Resolved]
  - Asthenia [Not Recovered/Not Resolved]
  - Diffuse alopecia [Not Recovered/Not Resolved]
  - Pain [Not Recovered/Not Resolved]
  - Weight increased [Not Recovered/Not Resolved]

NARRATIVE: CASE EVENT DATE: 201704
